FAERS Safety Report 10300617 (Version 1)
Quarter: 2014Q3

REPORT INFORMATION
  Report Type: Report from Study
  Country: MX (occurrence: MX)
  Receive Date: 20140714
  Receipt Date: 20140714
  Transmission Date: 20150326
  Serious: Yes (Hospitalization, Other)
  Sender: FDA-Public Use
  Company Number: MX-ORION CORPORATION ORION PHARMA-ENTC2014-0247

PATIENT
  Age: 89 Year
  Sex: Male

DRUGS (4)
  1. STALEVO [Suspect]
     Active Substance: CARBIDOPA\ENTACAPONE\LEVODOPA
     Dosage: STRENGTH: 150/37.5/200 MG
     Route: 065
  2. STALEVO [Suspect]
     Active Substance: CARBIDOPA\ENTACAPONE\LEVODOPA
     Indication: PARKINSON^S DISEASE
     Dosage: STRENGTH: 150/37.5/200 MG
     Route: 048
  3. ANTIBIOTIC [Concomitant]
     Active Substance: UNSPECIFIED INGREDIENT
     Route: 065
  4. STALEVO [Suspect]
     Active Substance: CARBIDOPA\ENTACAPONE\LEVODOPA
     Dosage: STRENGTH: 150/37.5/200 MG
     Route: 048

REACTIONS (8)
  - Treatment noncompliance [Unknown]
  - Anxiety [Not Recovered/Not Resolved]
  - Hallucination, visual [Not Recovered/Not Resolved]
  - Insomnia [Not Recovered/Not Resolved]
  - Venous occlusion [Unknown]
  - Weight decreased [Not Recovered/Not Resolved]
  - Gangrene [Recovered/Resolved]
  - Malaise [Not Recovered/Not Resolved]
